FAERS Safety Report 7181473-0 (Version None)
Quarter: 2010Q4

REPORT INFORMATION
  Report Type: 
  Country: None (occurrence: None)
  Receive Date: 20101221
  Receipt Date: 20100424
  Transmission Date: 20110411
  Serious: No
  Sender: FDA-Public Use
  Company Number: US-AMGEN-TCS408477

PATIENT

DRUGS (1)
  1. ENBREL [Suspect]
     Indication: RHEUMATOID ARTHRITIS
     Dosage: 50 MG, QWK
     Route: 058
     Dates: start: 20080610

REACTIONS (13)
  - BRONCHITIS CHRONIC [None]
  - CHILLS [None]
  - CHRONIC OBSTRUCTIVE PULMONARY DISEASE [None]
  - FATIGUE [None]
  - INFLUENZA [None]
  - INJECTION SITE HAEMATOMA [None]
  - INJECTION SITE HAEMORRHAGE [None]
  - INJECTION SITE PAIN [None]
  - MALAISE [None]
  - MUSCULOSKELETAL STIFFNESS [None]
  - OEDEMA PERIPHERAL [None]
  - PYREXIA [None]
  - UPPER RESPIRATORY TRACT CONGESTION [None]
